FAERS Safety Report 6494756-4 (Version None)
Quarter: 2009Q4

REPORT INFORMATION
  Report Type: 
  Country: None (occurrence: None)
  Receive Date: 20091214
  Receipt Date: 20090320
  Transmission Date: 20100525
  Serious: No
  Sender: FDA-Public Use
  Company Number: US-BRISTOL-MYERS SQUIBB COMPANY-14555189

PATIENT
  Age: 14 Year
  Sex: Male
  Weight: 45 kg

DRUGS (4)
  1. ABILIFY [Suspect]
     Indication: AFFECTIVE DISORDER
  2. STRATTERA [Concomitant]
  3. PROZAC [Concomitant]
     Dosage: DOSE DECREASED 2 DAYS AGO FROM 20 MG TO 10 MG NOW DISCONTINUED
  4. CONCERTA [Concomitant]
     Dosage: DOSE DECREASED 2 DAYS AGO FROM 36MG TO 18MG NOW DISCONTINUED

REACTIONS (1)
  - JAW DISORDER [None]
